FAERS Safety Report 8603927-X (Version None)
Quarter: 2012Q3

REPORT INFORMATION
  Report Type: 
  Country: None (occurrence: None)
  Receive Date: 20120820
  Receipt Date: 20120808
  Transmission Date: 20120928
  Serious: No
  Sender: FDA-Public Use
  Company Number: US-B.I. PHARMACEUTICALS,INC./RIDGEFIELD-2011-BP-18905BP

PATIENT
  Age: 72 Year
  Sex: Male

DRUGS (8)
  1. EFFEXOR [Concomitant]
     Indication: ANXIETY
     Dosage: 150 MG
     Route: 048
  2. CORGARD [Concomitant]
     Indication: ATRIAL FIBRILLATION
  3. HYDROCHLOROTHIAZIDE [Concomitant]
     Indication: HYPERTENSION
     Dosage: 25 MG
     Route: 048
  4. CARDURA [Concomitant]
     Indication: URINARY TRACT DISORDER
  5. CORGARD [Concomitant]
     Indication: CARDIAC DISORDER
     Dosage: 30 MG
     Route: 048
  6. PRADAXA [Suspect]
     Indication: ATRIAL FIBRILLATION
     Dosage: 300 MG
     Route: 048
     Dates: start: 20110201
  7. ASPIRIN [Concomitant]
     Indication: ATRIAL FIBRILLATION
     Dosage: 81 MG
     Route: 048
  8. CARDURA [Concomitant]
     Indication: PROSTATIC DISORDER
     Dosage: 80 MG
     Route: 048

REACTIONS (7)
  - TEMPERATURE INTOLERANCE [None]
  - VISION BLURRED [None]
  - VISUAL IMPAIRMENT [None]
  - MALAISE [None]
  - HALLUCINATION, VISUAL [None]
  - HYPOTENSION [None]
  - GASTROOESOPHAGEAL REFLUX DISEASE [None]
